FAERS Safety Report 4915214-1 (Version None)
Quarter: 2006Q1

REPORT INFORMATION
  Report Type: 
  Country: None (occurrence: None)
  Receive Date: 20060216
  Receipt Date: 20060216
  Transmission Date: 20060701
  Serious: No
  Sender: FDA-Public Use
  Company Number: None

PATIENT
  Age: 44 Year
  Sex: Male
  Weight: 102 kg

DRUGS (9)
  1. GAMUNEX [Suspect]
     Indication: CHRONIC INFLAMMATORY DEMYELINATING POLYRADICULONEUROPATHY
     Dosage: 40 GM IV DAILY X 5 DAYS
     Route: 042
     Dates: start: 20060124, end: 20060128
  2. GAMUNEX [Suspect]
  3. CELECOXIB [Concomitant]
  4. HYDROCODONE BITARTRATE + ACETAMINOPHEN [Concomitant]
  5. IBUPROFEN [Concomitant]
  6. PROPRANOLOL [Concomitant]
  7. TRAMADOL [Concomitant]
  8. METOCLOPRAMIDE [Concomitant]
  9. PROMETHAZINE [Concomitant]

REACTIONS (4)
  - BURNING SENSATION [None]
  - FATIGUE [None]
  - LYMPHADENOPATHY [None]
  - VIRAL INFECTION [None]
